FAERS Safety Report 9753522 (Version 2)
Quarter: 2013Q4

REPORT INFORMATION
  Report Type: Spontaneous
  Country: US (occurrence: None)
  Receive Date: 20131211
  Receipt Date: 20131218
  Transmission Date: 20140711
  Serious: Yes (Hospitalization)
  Sender: FDA-Public Use
  Company Number: AUR-APL-2013-10202

PATIENT
  Age: 45 Year
  Sex: Female

DRUGS (1)
  1. AMOXICILLIN [Suspect]
     Indication: PRODUCT USED FOR UNKNOWN INDICATION
     Dosage: 1750 MG (875 MG, 2 IN 1 D), ORAL
     Route: 048

REACTIONS (4)
  - Hepatotoxicity [None]
  - Hepatitis acute [None]
  - Biliary tract disorder [None]
  - Cholestasis [None]
